FAERS Safety Report 9934298 (Version 4)
Quarter: 2014Q3

REPORT INFORMATION
  Report Type: Spontaneous
  Country: JP (occurrence: JP)
  Receive Date: 20140228
  Receipt Date: 20140901
  Transmission Date: 20150326
  Serious: Yes (Hospitalization)
  Sender: FDA-Public Use
  Company Number: JP-JNJFOC-20140215469

PATIENT
  Age: 11 Month
  Sex: Male
  Weight: 8 kg

DRUGS (25)
  1. NOVO HEPARIN [Concomitant]
     Active Substance: HEPARIN SODIUM
     Route: 051
  2. VEEN-F [Concomitant]
     Route: 065
  3. LACTIC ACID. [Concomitant]
     Active Substance: LACTIC ACID
     Route: 065
  4. MUCODYNE [Concomitant]
     Active Substance: CARBOCYSTEINE
     Route: 048
  5. REMICADE [Suspect]
     Active Substance: INFLIXIMAB
     Indication: KAWASAKI^S DISEASE
     Route: 042
     Dates: start: 20140124, end: 20140124
  6. ASPIRIN. [Suspect]
     Active Substance: ASPIRIN
     Indication: PRODUCT USED FOR UNKNOWN INDICATION
     Route: 048
     Dates: start: 20140121, end: 20140128
  7. PREDONINE [Concomitant]
     Active Substance: PREDNISOLONE\PREDNISOLONE ACETATE\PREDNISOLONE SODIUM SUCCINATE
     Route: 042
     Dates: start: 20140121, end: 20140130
  8. ASVERIN (TIPEPIDINE HIBENZATE) [Concomitant]
     Active Substance: TIPEPIDINE HIBENZATE
     Route: 048
  9. RAPIACTA [Concomitant]
     Active Substance: PERAMIVIR
     Route: 041
  10. ESCRE [Concomitant]
     Route: 054
  11. VEEN D [Concomitant]
     Active Substance: CALCIUM CHLORIDE\DEXTROSE\POTASSIUM CHLORIDE\SODIUM ACETATE\SODIUM CHLORIDE
     Route: 041
  12. MIRACLID [Suspect]
     Active Substance: ULINASTATIN
     Indication: PRODUCT USED FOR UNKNOWN INDICATION
     Route: 042
     Dates: start: 20140623, end: 20140629
  13. GASTER [Concomitant]
     Active Substance: FAMOTIDINE
     Route: 048
  14. PROPETO [Concomitant]
     Route: 003
  15. CEFOTAXIME [Concomitant]
     Active Substance: CEFOTAXIME\CEFOTAXIME SODIUM
     Route: 065
     Dates: start: 20140120, end: 20140122
  16. TUBERCULINE PURIFIEE LYOPHILISEE [Concomitant]
     Route: 051
  17. AMPICILLIN SODIUM/ SULBACTAM SODIUM [Concomitant]
     Route: 042
  18. VENILON [Concomitant]
     Active Substance: HUMAN IMMUNOGLOBULIN G
     Route: 041
     Dates: start: 20140121, end: 20140124
  19. PREDNISOLONE. [Concomitant]
     Active Substance: PREDNISOLONE
     Route: 048
  20. BIOFERMIN [Concomitant]
     Active Substance: BACILLUS SUBTILIS\LACTOBACILLUS ACIDOPHILUS\STREPTOCOCCUS FAECAIS
     Route: 048
  21. ANHIBA [Concomitant]
     Active Substance: ACETAMINOPHEN
     Route: 054
  22. NIPOLAZIN [Concomitant]
     Route: 048
  23. CELTECT [Concomitant]
     Route: 048
  24. SOLDEM 3A [Concomitant]
     Active Substance: CARBOHYDRATES\POTASSIUM CHLORIDE\SODIUM CHLORIDE\SODIUM LACTATE
     Route: 041
  25. SOL-MELCORT [Concomitant]
     Active Substance: METHYLPREDNISOLONE SODIUM SUCCINATE
     Route: 042

REACTIONS (5)
  - Kawasaki^s disease [Recovering/Resolving]
  - Off label use [Recovered/Resolved]
  - Drug eruption [Recovered/Resolved]
  - Rash maculo-papular [Recovered/Resolved]
  - Onychomadesis [Unknown]

NARRATIVE: CASE EVENT DATE: 20140124
